FAERS Safety Report 9618451 (Version 1)
Quarter: 2013Q4

REPORT INFORMATION
  Report Type: Spontaneous
  Country: US (occurrence: US)
  Receive Date: 20131014
  Receipt Date: 20131014
  Transmission Date: 20140711
  Serious: No
  Sender: FDA-Public Use
  Company Number: US-PFIZER INC-2013290986

PATIENT
  Sex: 0

DRUGS (1)
  1. VIAGRA [Suspect]
     Dosage: UNK
     Dates: start: 20130903

REACTIONS (2)
  - Blood glucose decreased [Unknown]
  - Therapeutic response unexpected [Unknown]
